FAERS Safety Report 11220443 (Version 3)
Quarter: 2016Q1

REPORT INFORMATION
  Report Type: Spontaneous
  Country: US (occurrence: US)
  Receive Date: 20150625
  Receipt Date: 20160211
  Transmission Date: 20160525
  Serious: Yes (Other)
  Sender: FDA-Public Use
  Company Number: US-AMGEN-USASP2015060606

PATIENT
  Age: 70 Year
  Sex: Female

DRUGS (2)
  1. PROLIA [Suspect]
     Active Substance: DENOSUMAB
     Indication: OSTEOPENIA
     Dosage: UNK
     Route: 065
     Dates: start: 20150527
  2. CALCIUM [Concomitant]
     Active Substance: CALCIUM

REACTIONS (12)
  - Pulmonary mass [Unknown]
  - Diarrhoea [Recovered/Resolved]
  - Weight decreased [Recovered/Resolved]
  - Abdominal discomfort [Recovered/Resolved]
  - Rash [Unknown]
  - Pneumonia [Unknown]
  - Abdominal pain [Unknown]
  - Decreased appetite [Recovered/Resolved]
  - Asthenia [Unknown]
  - Nausea [Recovered/Resolved]
  - Pain [Unknown]
  - Arthritis [Unknown]
